FAERS Safety Report 9308385 (Version 1)
Quarter: 2013Q2

REPORT INFORMATION
  Report Type: Spontaneous
  Country: GR (occurrence: GR)
  Receive Date: 20130524
  Receipt Date: 20130524
  Transmission Date: 20140414
  Serious: Yes (Other)
  Sender: FDA-Public Use
  Company Number: GR-PFIZER INC-2013156229

PATIENT
  Age: 20 Year
  Sex: Male

DRUGS (3)
  1. TIGECYCLINE [Suspect]
     Indication: KLEBSIELLA INFECTION
     Dosage: UNK
     Dates: start: 2012
  2. COLIMYCINE [Suspect]
     Indication: KLEBSIELLA INFECTION
     Dosage: UNK
     Dates: start: 2012
  3. GENTAMYCIN [Suspect]
     Indication: KLEBSIELLA INFECTION
     Dosage: UNK
     Dates: start: 2012

REACTIONS (3)
  - Lung abscess [Unknown]
  - Condition aggravated [Unknown]
  - Drug ineffective [Unknown]
